FAERS Safety Report 10266753 (Version 1)
Quarter: 2014Q2

REPORT INFORMATION
  Report Type: Spontaneous
  Country: US (occurrence: US)
  Receive Date: 20140630
  Receipt Date: 20140630
  Transmission Date: 20141212
  Serious: Yes (Other)
  Sender: FDA-Public Use
  Company Number: US-ROCHE-1422355

PATIENT
  Age: 65 Year
  Sex: Female
  Weight: 80.81 kg

DRUGS (10)
  1. PEGASYS [Suspect]
     Indication: HEPATITIS C
     Route: 058
     Dates: start: 20140203, end: 20140403
  2. COPEGUS [Suspect]
     Indication: HEPATITIS C
     Route: 048
     Dates: start: 20140203
  3. COPEGUS [Suspect]
     Route: 048
     Dates: start: 201403, end: 20140403
  4. OLYSIO [Suspect]
     Indication: HEPATITIS C
     Route: 048
     Dates: start: 20140203, end: 20140403
  5. HYZAAR [Concomitant]
     Indication: HYPERTENSION
     Dosage: 100/12.5 MG
     Route: 065
  6. DILTIAZEM [Concomitant]
     Indication: HYPERTENSION
     Route: 065
  7. SINGULAIR [Concomitant]
     Indication: ASTHMA
     Route: 065
  8. LEXAPRO [Concomitant]
     Indication: DEPRESSION
     Route: 065
  9. ALBUTEROL [Concomitant]
     Indication: ASTHMA
  10. DETROL LA [Concomitant]
     Indication: HYPERTONIC BLADDER
     Route: 065

REACTIONS (9)
  - Anaemia [Recovered/Resolved]
  - Rash [Recovered/Resolved]
  - Neutropenia [Unknown]
  - Blood urea increased [Unknown]
  - Platelet count decreased [Unknown]
  - White blood cell count decreased [Unknown]
  - Blood bilirubin increased [Unknown]
  - Blood creatinine increased [Unknown]
  - Haematocrit decreased [Unknown]
